FAERS Safety Report 6249394-5 (Version None)
Quarter: 2009Q2

REPORT INFORMATION
  Report Type: 
  Country: None (occurrence: None)
  Receive Date: 20090629
  Receipt Date: 20090622
  Transmission Date: 20091009
  Serious: Yes (Hospitalization)
  Sender: FDA-Public Use
  Company Number: US-BIOGENIDEC-2009BI019135

PATIENT
  Age: 60 Year
  Sex: Female
  Weight: 72 kg

DRUGS (6)
  1. AVONEX [Suspect]
     Indication: MULTIPLE SCLEROSIS
     Route: 030
     Dates: start: 20020101, end: 20060101
  2. AVONEX [Suspect]
     Route: 030
     Dates: start: 20090501
  3. AMANTADINE HCL [Concomitant]
     Indication: HYPERSOMNIA
  4. AMANTADINE HCL [Concomitant]
     Indication: FATIGUE
  5. LEXAPRO [Concomitant]
     Indication: HYPERSOMNIA
  6. LEXAPRO [Concomitant]
     Indication: DEPRESSION

REACTIONS (5)
  - ANGINA PECTORIS [None]
  - DIARRHOEA [None]
  - HEART RATE IRREGULAR [None]
  - INFLUENZA LIKE ILLNESS [None]
  - MYOCARDIAL INFARCTION [None]
